FAERS Safety Report 10062232 (Version 1)
Quarter: 2014Q2

REPORT INFORMATION
  Report Type: Spontaneous
  Country: US (occurrence: US)
  Receive Date: 20140407
  Receipt Date: 20140407
  Transmission Date: 20141212
  Serious: Yes (Hospitalization, Other)
  Sender: FDA-Public Use
  Company Number: US-PFIZER INC-2014092797

PATIENT
  Age: 51 Year
  Sex: Female
  Weight: 78.91 kg

DRUGS (15)
  1. CHANTIX [Suspect]
     Dosage: 0.5 MG, 1X/DAY
  2. ADVAIR DISKUS [Concomitant]
     Dosage: 1 DF, 1X/DAY
     Route: 055
  3. AMBIEN [Concomitant]
     Dosage: 10 MG, 1X/DAY
  4. ACETYLSALICYLIC ACID [Concomitant]
     Dosage: 81 MG, 1X/DAY
  5. ATROVENT [Concomitant]
     Dosage: 1 DF, 1X/DAY
  6. BENADRYL [Concomitant]
     Dosage: 25 MG, 1X/DAY
  7. FLONASE [Concomitant]
     Dosage: 1 DF, 1X/DAY [FLONASE 50MCG/ACTUATION NASAL SPRAY]
  8. FUROSEMIDE [Concomitant]
     Dosage: 40 MG, 1X/DAY
  9. HYDROCHLOROTHIAZIDE [Concomitant]
     Dosage: 25 MG, 1X/DAY EVERY MORNING
  10. METFORMIN [Concomitant]
     Dosage: 500 MG, AS NEEDED
  11. NITROGLYCERIN [Concomitant]
     Dosage: 1 DF, 1X/DAY
  12. OMEGA 3 [Concomitant]
     Dosage: UNK
  13. POTASSIUM [Concomitant]
     Dosage: 1 DF, 1X/DAY
  14. SINGULAIR [Concomitant]
     Dosage: 10 MG, 1X/DAY
  15. STRIBILD [Concomitant]
     Dosage: 1 DF, 1X/DAY

REACTIONS (36)
  - Lung disorder [Unknown]
  - Chest pain [Unknown]
  - Acute coronary syndrome [Unknown]
  - Cardiac disorder [Unknown]
  - Pelvic discomfort [Unknown]
  - Type V hyperlipidaemia [Unknown]
  - HIV infection [Unknown]
  - Coronary artery disease [Unknown]
  - Dyspnoea [Unknown]
  - Mitral valve disease [Unknown]
  - Weight decreased [Unknown]
  - Wheezing [Unknown]
  - Cough [Unknown]
  - Treatment noncompliance [Unknown]
  - Palpitations [Unknown]
  - Peripheral swelling [Unknown]
  - Hypoaesthesia [Unknown]
  - Paraesthesia [Unknown]
  - Tachycardia [Unknown]
  - Upper respiratory tract irritation [Unknown]
  - Abdominal discomfort [Unknown]
  - Anxiety [Unknown]
  - Headache [Unknown]
  - Migraine [Unknown]
  - Asthenia [Unknown]
  - Gait disturbance [Unknown]
  - Insomnia [Unknown]
  - Back pain [Unknown]
  - Pain in extremity [Unknown]
  - Tobacco abuse [Unknown]
  - Amnesia [Unknown]
  - Depression [Unknown]
  - Fatigue [Unknown]
  - Muscular weakness [Unknown]
  - Tension headache [Unknown]
  - Varicose vein [Unknown]
